FAERS Safety Report 25529431 (Version 1)
Quarter: 2025Q3

REPORT INFORMATION
  Report Type: Spontaneous
  Country: EU (occurrence: EU)
  Receive Date: 20250708
  Receipt Date: 20250708
  Transmission Date: 20251021
  Serious: Yes (Death, Other)
  Sender: PFIZER
  Company Number: None

PATIENT
  Age: 2 Year
  Sex: Male
  Weight: 15 kg

DRUGS (1)
  1. FOSPHENYTOIN SODIUM [Suspect]
     Active Substance: FOSPHENYTOIN SODIUM
     Indication: Epilepsy
     Route: 042
     Dates: start: 20250221, end: 20250221

REACTIONS (6)
  - Bradycardia [Fatal]
  - Cardio-respiratory arrest [Fatal]
  - Accidental overdose [Fatal]
  - Product label confusion [Fatal]
  - Product packaging confusion [Fatal]
  - Off label use [Unknown]

NARRATIVE: CASE EVENT DATE: 20250221
